FAERS Safety Report 15980442 (Version 3)
Quarter: 2019Q2

REPORT INFORMATION
  Report Type: Other
  Country: DK (occurrence: DK)
  Receive Date: 20190219
  Receipt Date: 20190403
  Transmission Date: 20190711
  Serious: Yes (Congenital Anomaly, Other)
  Sender: FDA-Public Use
  Company Number: DK-RARE DISEASE THERAPEUTICS, INC.-2062862

PATIENT
  Sex: Male

DRUGS (11)
  1. BUDESONIDE. [Suspect]
     Active Substance: BUDESONIDE
     Route: 064
  2. INFLIXIMAB [Suspect]
     Active Substance: INFLIXIMAB
     Route: 064
  3. ADALIMUMAB [Suspect]
     Active Substance: ADALIMUMAB
     Route: 064
  4. INFLIXIMAB [Suspect]
     Active Substance: INFLIXIMAB
     Route: 064
  5. ADALIMUMAB [Suspect]
     Active Substance: ADALIMUMAB
     Route: 064
  6. 5 ASA (MESALAZINE) [Suspect]
     Active Substance: MESALAMINE
     Route: 064
  7. BUDESONIDE. [Suspect]
     Active Substance: BUDESONIDE
     Route: 064
  8. INFLIXIMAB [Suspect]
     Active Substance: INFLIXIMAB
     Route: 064
  9. MISOPROSTOL. [Concomitant]
     Active Substance: MISOPROSTOL
     Route: 065
  10. ADALIMUMAB [Suspect]
     Active Substance: ADALIMUMAB
     Route: 064
  11. PURIXAN [Suspect]
     Active Substance: MERCAPTOPURINE
     Indication: COLITIS
     Route: 064

REACTIONS (2)
  - Foetal exposure during pregnancy [None]
  - Foetal distress syndrome [Unknown]
